FAERS Safety Report 6634918-6 (Version None)
Quarter: 2010Q1

REPORT INFORMATION
  Report Type: 
  Country: None (occurrence: None)
  Receive Date: 20100312
  Receipt Date: 20100312
  Transmission Date: 20100710
  Serious: No
  Sender: FDA-Public Use
  Company Number: None

PATIENT
  Age: 48 Year
  Sex: Female
  Weight: 85.503 kg

DRUGS (3)
  1. OXALIPLATIN [Suspect]
     Indication: COLON CANCER
     Dosage: 162 MG - IVSS
     Route: 042
  2. FLUOROURACIL [Concomitant]
  3. LEUCOVORIN CALCIUM [Concomitant]

REACTIONS (3)
  - BODY TEMPERATURE INCREASED [None]
  - FEELING HOT [None]
  - NAUSEA [None]
